FAERS Safety Report 10267232 (Version 2)
Quarter: 2014Q3

REPORT INFORMATION
  Report Type: Spontaneous
  Country: US (occurrence: US)
  Receive Date: 20140630
  Receipt Date: 20140722
  Transmission Date: 20150326
  Serious: Yes (Hospitalization)
  Sender: FDA-Public Use
  Company Number: US-JNJFOC-20140612945

PATIENT
  Sex: Male
  Weight: 10.89 kg

DRUGS (2)
  1. PHENOBARB [Concomitant]
     Active Substance: PHENOBARBITAL SODIUM
     Route: 048
  2. INVEGA SUSTENNA [Suspect]
     Active Substance: PALIPERIDONE PALMITATE
     Indication: SCHIZOAFFECTIVE DISORDER
     Route: 030
     Dates: start: 201209, end: 201210

REACTIONS (11)
  - Imprisonment [Unknown]
  - Adverse event [Unknown]
  - Hostility [Recovered/Resolved]
  - Aggression [Unknown]
  - Vision blurred [Recovered/Resolved]
  - Drug dose omission [Unknown]
  - Off label use [Unknown]
  - Suicidal ideation [Recovered/Resolved]
  - Hallucination, auditory [Recovered/Resolved]
  - Paranoia [Unknown]
  - Depression [Recovered/Resolved]

NARRATIVE: CASE EVENT DATE: 201209
